FAERS Safety Report 17851377 (Version 3)
Quarter: 2020Q3

REPORT INFORMATION
  Report Type: Other
  Country: US (occurrence: US)
  Receive Date: 20200602
  Receipt Date: 20200717
  Transmission Date: 20201103
  Serious: Yes (Hospitalization)
  Sender: FDA-Public Use
  Company Number: US-ROCHE-2606730

PATIENT
  Sex: Male

DRUGS (3)
  1. OCREVUS [Suspect]
     Active Substance: OCRELIZUMAB
     Route: 065
  2. OCREVUS [Suspect]
     Active Substance: OCRELIZUMAB
     Indication: PRIMARY PROGRESSIVE MULTIPLE SCLEROSIS
     Route: 065
     Dates: start: 20180112, end: 20191213
  3. OCREVUS [Suspect]
     Active Substance: OCRELIZUMAB
     Dosage: INITIAL DOSES: INFUSE 300MGS DAY 1 AND DAY 15
     Route: 042

REACTIONS (2)
  - COVID-19 [Not Recovered/Not Resolved]
  - Pulmonary embolism [Not Recovered/Not Resolved]
